FAERS Safety Report 12626684 (Version 9)
Quarter: 2020Q1

REPORT INFORMATION
  Report Type: Report from Study
  Country: CN (occurrence: CN)
  Receive Date: 20160805
  Receipt Date: 20200107
  Transmission Date: 20200409
  Serious: Yes (Hospitalization)
  Sender: FDA-Public Use
  Company Number: PHHY2016CN107245

PATIENT
  Age: 51 Year
  Sex: Male
  Weight: 67.5 kg

DRUGS (32)
  1. SIMULECT [Suspect]
     Active Substance: BASILIXIMAB
     Indication: PROPHYLAXIS AGAINST TRANSPLANT REJECTION
  2. TALCID [Concomitant]
     Active Substance: HYDROTALCITE
     Indication: ANTACID THERAPY
     Dosage: 1000 MG, QD
     Route: 048
     Dates: start: 20160104
  3. FUROSEMIDE. [Concomitant]
     Active Substance: FUROSEMIDE
     Indication: PROPHYLAXIS
     Dosage: 80 MG, QD
     Route: 042
     Dates: start: 20160103, end: 20160103
  4. SODIUM CHLORIDE. [Concomitant]
     Active Substance: SODIUM CHLORIDE
     Indication: FLUID REPLACEMENT
     Dosage: QD
     Route: 042
     Dates: start: 20160103, end: 20160103
  5. PMS-PROMETHAZINE [Concomitant]
     Indication: SEDATION
     Dosage: 2 DF, QD
     Route: 048
     Dates: start: 20160104, end: 20160118
  6. DEXA//DEXAMETHASONE [Concomitant]
     Active Substance: DEXAMETHASONE
     Indication: PROPHYLAXIS
     Dosage: 10 MG, QD
     Route: 042
     Dates: start: 20160103, end: 20160103
  7. INSULIN [Concomitant]
     Active Substance: INSULIN NOS
     Indication: ELECTROLYTE SUBSTITUTION THERAPY
     Dosage: 18 IU, QD
     Route: 042
     Dates: start: 20160103, end: 20160103
  8. METHYLPREDNISOLONE. [Concomitant]
     Active Substance: METHYLPREDNISOLONE
     Indication: PRODUCT USED FOR UNKNOWN INDICATION
     Dosage: 660 MG, QD
     Route: 042
     Dates: start: 20160103, end: 20160104
  9. TIENAM [Concomitant]
     Active Substance: CILASTATIN SODIUM\IMIPENEM
     Indication: INFECTION PROPHYLAXIS
     Dosage: 0.5 G, Q8H
     Route: 042
     Dates: start: 20160103, end: 20160107
  10. MANNITOL. [Concomitant]
     Active Substance: MANNITOL
     Indication: PROPHYLAXIS
     Dosage: 125 MG, QD
     Route: 065
     Dates: start: 20160103, end: 20160103
  11. CASPOFUNGIN ACETATE. [Concomitant]
     Active Substance: CASPOFUNGIN ACETATE
     Indication: INFECTION PROPHYLAXIS
     Dosage: 50 MG, QD
     Route: 042
     Dates: start: 20160103, end: 20160103
  12. SIMULECT [Suspect]
     Active Substance: BASILIXIMAB
     Indication: RENAL TRANSPLANT
     Dosage: 20 MG, QD
     Route: 042
     Dates: start: 20160107, end: 20160107
  13. PREDNISONE. [Suspect]
     Active Substance: PREDNISONE
     Indication: IMMUNOSUPPRESSANT DRUG THERAPY
     Dosage: UNK
     Route: 065
  14. ALPAX//ALPRAZOLAM [Concomitant]
     Indication: SEDATION
     Dosage: 0.4 OT, QN
     Route: 048
     Dates: start: 20160104, end: 20160118
  15. POTASSIUM CHLORIDE. [Concomitant]
     Active Substance: POTASSIUM CHLORIDE
     Indication: ELECTROLYTE SUBSTITUTION THERAPY
     Dosage: 12 ML, QD
     Route: 042
     Dates: start: 20160103, end: 20160103
  16. ASCORBIC ACID W/CALCIUM GLUCONATE/C/00321301/ [Concomitant]
     Indication: NUTRITIONAL SUPPLEMENTATION
     Dosage: 3 G, QD
     Route: 042
     Dates: start: 20160104, end: 20160107
  17. MYFORTIC [Suspect]
     Active Substance: MYCOPHENOLATE SODIUM
     Indication: PROPHYLAXIS AGAINST TRANSPLANT REJECTION
     Dosage: 720 MG, BID
     Route: 048
     Dates: start: 20160104, end: 20160107
  18. SUCROSE [Concomitant]
     Active Substance: SUCROSE
     Indication: GASTRITIS PROPHYLAXIS
     Dosage: 750 MG, UNK
     Route: 048
     Dates: start: 20160103, end: 20160103
  19. DIAZEPAM. [Concomitant]
     Active Substance: DIAZEPAM
     Indication: SEDATION
     Dosage: 5 MG, QD
     Route: 048
     Dates: start: 20160103, end: 20160103
  20. MAGNESII SULFAS [Concomitant]
     Indication: ELECTROLYTE SUBSTITUTION THERAPY
     Dosage: 408 ML, QD
     Route: 042
     Dates: start: 20160103, end: 20160103
  21. AMPHOTERICINE B, LIPOSOME [Concomitant]
     Active Substance: AMPHOTERICIN B
     Indication: INFECTION PROPHYLAXIS
     Dosage: 10 MG, QD
     Route: 065
     Dates: start: 20160104, end: 20160111
  22. GLUCOS [Concomitant]
     Indication: ELECTROLYTE SUBSTITUTION THERAPY
     Dosage: 3000 ML, QD
     Route: 042
     Dates: start: 20160103, end: 20160103
  23. MYFORTIC [Suspect]
     Active Substance: MYCOPHENOLATE SODIUM
     Indication: RENAL TRANSPLANT
     Dosage: UNK UNK, BID
     Route: 048
     Dates: start: 20160103, end: 20160103
  24. MYFORTIC [Suspect]
     Active Substance: MYCOPHENOLATE SODIUM
     Dosage: 540 MG, BID
     Route: 048
     Dates: start: 20160108, end: 20160118
  25. METHYLPREDNISOLONE. [Concomitant]
     Active Substance: METHYLPREDNISOLONE
     Dosage: 20 MG, QD
     Route: 030
     Dates: start: 20160104, end: 20160105
  26. DILTIAZEM HYDROCHLORIDE. [Concomitant]
     Active Substance: DILTIAZEM HYDROCHLORIDE
     Indication: PRODUCT USED FOR UNKNOWN INDICATION
     Dosage: 30 MG, QD
     Route: 048
     Dates: start: 20160104
  27. ESOMEPRAZOLE. [Concomitant]
     Active Substance: ESOMEPRAZOLE MAGNESIUM
     Indication: GASTRITIS PROPHYLAXIS
     Dosage: 40 MG, QD
     Route: 048
     Dates: start: 20160104, end: 20160115
  28. AMIKACIN. [Concomitant]
     Active Substance: AMIKACIN
     Indication: PROPHYLAXIS
     Dosage: 400 MG, PRN
     Route: 042
     Dates: start: 20160103, end: 20160103
  29. SODIUM BICARBONATE. [Concomitant]
     Active Substance: SODIUM BICARBONATE
     Indication: ELECTROLYTE SUBSTITUTION THERAPY
     Dosage: 500 ML, QD
     Route: 042
     Dates: start: 20160103, end: 20160103
  30. HEPATITIS B IMMUNE GLOBULIN [Concomitant]
     Active Substance: HUMAN HEPATITIS B VIRUS IMMUNE GLOBULIN
     Indication: ANTIVIRAL PROPHYLAXIS
     Dosage: 400 IU, QD
     Route: 042
     Dates: start: 20160103, end: 20160103
  31. TACROLIMUS. [Suspect]
     Active Substance: TACROLIMUS
     Indication: IMMUNOSUPPRESSANT DRUG THERAPY
     Dosage: 7 MG, QD
     Route: 065
     Dates: start: 20160104
  32. BASILIXIMAB [Concomitant]
     Active Substance: BASILIXIMAB
     Indication: PRODUCT USED FOR UNKNOWN INDICATION
     Dosage: 30 MG, QD
     Route: 065
     Dates: start: 20160103, end: 20160103

REACTIONS (4)
  - Hepatic steatosis [Recovered/Resolved]
  - Delirium [Recovered/Resolved]
  - Defiant behaviour [Recovered/Resolved]
  - Nervousness [Recovered/Resolved]

NARRATIVE: CASE EVENT DATE: 20160106
